FAERS Safety Report 7841667-5 (Version None)
Quarter: 2011Q4

REPORT INFORMATION
  Report Type: 
  Country: None (occurrence: None)
  Receive Date: 20111025
  Receipt Date: 20111017
  Transmission Date: 20120403
  Serious: Yes (Hospitalization)
  Sender: FDA-Public Use
  Company Number: US-ASTELLAS-2011US004988

PATIENT

DRUGS (23)
  1. PERCOCET [Concomitant]
     Indication: PAIN
     Dosage: 1 DF, PRN
     Route: 048
     Dates: start: 20010101
  2. PREDNISONE [Concomitant]
     Indication: RENAL TRANSPLANT
     Dosage: O
     Route: 048
     Dates: start: 20100829
  3. BACTRIM DS [Concomitant]
     Indication: INFECTION
     Dosage: 1 DF, UID/QD
     Route: 048
     Dates: start: 20100829
  4. SYNTHROID [Concomitant]
     Indication: THYROID DISORDER
     Dosage: 0.025 MG, UID/QD
     Route: 048
     Dates: start: 20030101
  5. CLONAZEPAM [Concomitant]
     Indication: MUSCLE SPASMS
     Dosage: 0.5 MG, PRN
     Route: 048
     Dates: start: 20040101
  6. FOLIC ACID [Concomitant]
     Indication: PRODUCT USED FOR UNKNOWN INDICATION
     Dosage: 1 MG, UID/QD
     Route: 048
     Dates: start: 20100601
  7. LANTUS [Concomitant]
     Indication: BLOOD INSULIN
     Dosage: 25 U, UID/QD
     Route: 065
  8. PROTONIX [Concomitant]
     Indication: GASTRIC PH DECREASED
     Dosage: 40 MG, BID
     Route: 048
  9. CARAFATE [Concomitant]
     Indication: PRODUCT USED FOR UNKNOWN INDICATION
     Dosage: 1 G, TID
     Route: 048
     Dates: start: 20110401
  10. MYCOPHENOLATE MOFETIL (CELLCEPT) [Concomitant]
     Indication: RENAL TRANSPLANT
     Dosage: 500 MG, BID
     Route: 048
     Dates: start: 20100829
  11. MIRAPEX [Concomitant]
     Indication: RESTLESS LEGS SYNDROME
     Dosage: 0.5 MG, UID/QD
     Route: 048
     Dates: start: 20050101
  12. HUMALOG [Concomitant]
     Indication: BLOOD INSULIN
     Dosage: UNK
     Route: 065
  13. NORVASC [Concomitant]
     Indication: RENAL TRANSPLANT
     Dosage: O
     Route: 048
     Dates: start: 20100829
  14. ZETIA [Concomitant]
     Indication: BLOOD CHOLESTEROL
     Dosage: 10 MG, UID/QD
     Route: 048
     Dates: start: 19950101
  15. LASIX [Concomitant]
     Indication: FLUID RETENTION
     Dosage: 20 MG, BID
     Route: 048
     Dates: start: 20100601
  16. PROGRAF [Suspect]
     Indication: RENAL TRANSPLANT
     Dosage: 3 MG, UID/QD
     Route: 048
     Dates: start: 20100829
  17. LAMICTAL [Concomitant]
     Indication: RESTLESS LEGS SYNDROME
     Dosage: 400 MG, UID/QD
     Route: 048
     Dates: start: 20050101
  18. CLARITIN [Concomitant]
     Indication: HYPERSENSITIVITY
     Dosage: 10 MG, UID/QD
     Route: 048
     Dates: start: 19980101
  19. ATARAX [Concomitant]
     Indication: PRURITUS
     Dosage: 25 MG, PRN
     Route: 048
     Dates: start: 20040101
  20. NYSTATIN [Concomitant]
     Indication: INFECTION
     Dosage: UNK
     Route: 061
     Dates: start: 20110301
  21. SIMVASTATIN [Concomitant]
     Indication: BLOOD CHOLESTEROL
     Dosage: 3 MG, UID/QD
     Route: 048
  22. COREG [Concomitant]
     Indication: CARDIAC DISORDER
     Dosage: 6.25 MG, BID
     Route: 048
     Dates: start: 19900101
  23. DETROL [Concomitant]
     Indication: INCONTINENCE
     Dosage: 4 MG, UID/QD
     Route: 048
     Dates: start: 19980101

REACTIONS (7)
  - LIGAMENT RUPTURE [None]
  - INFLUENZA [None]
  - SALIVARY DUCT OBSTRUCTION [None]
  - ANKLE FRACTURE [None]
  - BACK PAIN [None]
  - SCAR EXCISION [None]
  - EPISTAXIS [None]
